FAERS Safety Report 7507674-7 (Version None)
Quarter: 2011Q2

REPORT INFORMATION
  Report Type: 
  Country: None (occurrence: None)
  Receive Date: 20110527
  Receipt Date: 20110518
  Transmission Date: 20111010
  Serious: Yes (Hospitalization, Other)
  Sender: FDA-Public Use
  Company Number: DE-BIOGENIDEC-2011BI018995

PATIENT
  Age: 52 Year
  Sex: Female
  Weight: 119 kg

DRUGS (6)
  1. TYSABRI [Suspect]
     Route: 042
     Dates: start: 20110201
  2. BACLOFEN [Concomitant]
     Indication: MUSCLE SPASTICITY
  3. NITROFURANTOIN [Concomitant]
     Indication: URINARY RETENTION
  4. TYSABRI [Suspect]
     Indication: MULTIPLE SCLEROSIS
     Route: 042
     Dates: start: 20090401, end: 20090701
  5. TOPAMAX [Concomitant]
     Indication: PAIN
  6. TAMSULOSIN HCL [Concomitant]
     Indication: URINARY RETENTION

REACTIONS (1)
  - BREAST CANCER [None]
